FAERS Safety Report 4665483-0 (Version None)
Quarter: 2005Q2

REPORT INFORMATION
  Report Type: 
  Country: None (occurrence: None)
  Receive Date: 20050519
  Receipt Date: 20040913
  Transmission Date: 20051028
  Serious: No
  Sender: FDA-Public Use
  Company Number: US-BRISTOL-MYERS SQUIBB COMPANY-12700514

PATIENT
  Age: 74 Year
  Sex: Female
  Weight: 62 kg

DRUGS (1)
  1. CYTOXAN [Suspect]
     Indication: LEUKAEMIA
     Dosage: ADMINISTERED: 26-JUL-2004, 27-JUL-2004 AND 28-JUL-2004.
     Route: 042
     Dates: start: 20040823, end: 20040823

REACTIONS (1)
  - HYPERSENSITIVITY [None]
